FAERS Safety Report 7472090-3 (Version None)
Quarter: 2011Q2

REPORT INFORMATION
  Report Type: 
  Country: None (occurrence: None)
  Receive Date: 20110511
  Receipt Date: 20101215
  Transmission Date: 20111010
  Serious: No
  Sender: FDA-Public Use
  Company Number: A0899940A

PATIENT
  Age: 50 Year
  Sex: Female

DRUGS (9)
  1. ZOFRAN [Concomitant]
  2. UNKNOWN MEDICATION [Concomitant]
  3. HERCEPTIN [Concomitant]
  4. BENICAR [Concomitant]
  5. JANUVIA [Concomitant]
  6. ZOMETA [Concomitant]
  7. PROMETHAZINE [Concomitant]
  8. LORAZEPAM [Concomitant]
  9. TYKERB [Suspect]
     Indication: BREAST CANCER
     Dosage: 1250MG PER DAY
     Route: 048
     Dates: start: 20100701, end: 20101101

REACTIONS (2)
  - NAUSEA [None]
  - DIARRHOEA [None]
